FAERS Safety Report 4287145-4 (Version None)
Quarter: 2004Q1

REPORT INFORMATION
  Report Type: 
  Country: None (occurrence: None)
  Receive Date: 20040126
  Receipt Date: 20030821
  Transmission Date: 20041129
  Serious: No
  Sender: FDA-Public Use
  Company Number: USA030845017

PATIENT
  Age: 63 Year
  Sex: Female
  Weight: 49 kg

DRUGS (2)
  1. FORTEO [Suspect]
     Indication: OSTEOPOROSIS
     Dosage: 20 UG/DAY
     Dates: start: 20030801
  2. VIOXX [Concomitant]

REACTIONS (5)
  - BACK PAIN [None]
  - DYSPEPSIA [None]
  - FATIGUE [None]
  - MYALGIA [None]
  - VISUAL DISTURBANCE [None]
